FAERS Safety Report 8950873 (Version 1)
Quarter: 2012Q4

REPORT INFORMATION
  Report Type: Spontaneous
  Country: IT (occurrence: None)
  Receive Date: 20121128
  Receipt Date: 20121128
  Transmission Date: 20130627
  Serious: Yes (Other)
  Sender: FDA-Public Use
  Company Number: 1497164

PATIENT
  Age: 16 Year
  Sex: Female

DRUGS (4)
  1. MEROPENEM [Suspect]
     Indication: TIBIA FRACTURE
     Route: 042
     Dates: start: 20121006, end: 20121012
  2. TARGOSID [Concomitant]
  3. CLEXANE [Concomitant]
  4. FERLIXIT [Concomitant]

REACTIONS (2)
  - Muscle rigidity [None]
  - Convulsion [None]
